FAERS Safety Report 9548850 (Version 1)
Quarter: 2013Q3

REPORT INFORMATION
  Report Type: Spontaneous
  Country: US (occurrence: US)
  Receive Date: 20130924
  Receipt Date: 20130924
  Transmission Date: 20140515
  Serious: Yes (Hospitalization, Other)
  Sender: FDA-Public Use
  Company Number: US-ASTRAZENECA-2013SE69598

PATIENT
  Age: 66 Year
  Sex: Female
  Weight: 107.5 kg

DRUGS (14)
  1. ARIMIDEX [Suspect]
     Indication: BREAST CANCER FEMALE
     Route: 048
     Dates: start: 20130823, end: 20130910
  2. OMEPRAZOLE [Suspect]
     Indication: GASTROOESOPHAGEAL REFLUX DISEASE
     Route: 048
     Dates: start: 201001
  3. ELAVIL [Suspect]
     Route: 065
  4. ELAVIL [Suspect]
     Route: 065
  5. LANTUS [Concomitant]
     Indication: DIABETES MELLITUS
  6. ALMARYL [Concomitant]
     Indication: DIABETES MELLITUS
  7. ASPRIN [Concomitant]
     Indication: CEREBROVASCULAR ACCIDENT PROPHYLAXIS
  8. ZEBATA [Concomitant]
     Indication: HEART RATE ABNORMAL
  9. PRIMIDONE [Concomitant]
     Indication: RESTLESS LEGS SYNDROME
     Dosage: DAILY
  10. COZAAR [Concomitant]
     Indication: BLOOD PRESSURE ABNORMAL
  11. SPIRONLACTONE [Concomitant]
     Indication: ANTIINFLAMMATORY THERAPY
  12. WARFARIN [Concomitant]
     Indication: ATRIAL FIBRILLATION
     Dosage: 5MG SIX DAYS A WEEK
  13. AMBIEN [Concomitant]
     Indication: SLEEP DISORDER
     Dosage: HALF 10MG PRN
  14. METFORMIN [Concomitant]

REACTIONS (24)
  - Malaise [Unknown]
  - Pallor [Unknown]
  - Atrial fibrillation [Unknown]
  - Breast cancer female [Not Recovered/Not Resolved]
  - Asthenia [Recovered/Resolved]
  - Bradycardia [Unknown]
  - Blood pressure decreased [Unknown]
  - Tachycardia [Unknown]
  - Impaired healing [Not Recovered/Not Resolved]
  - Wound dehiscence [Not Recovered/Not Resolved]
  - Emotional distress [Not Recovered/Not Resolved]
  - Nervousness [Not Recovered/Not Resolved]
  - Tension [Not Recovered/Not Resolved]
  - Feeling cold [Unknown]
  - Dysphagia [Unknown]
  - Feeling abnormal [Recovered/Resolved]
  - Aphagia [Not Recovered/Not Resolved]
  - Dyspepsia [Not Recovered/Not Resolved]
  - Chills [Unknown]
  - Blood glucose increased [Recovered/Resolved]
  - Vomiting [Unknown]
  - Hot flush [Not Recovered/Not Resolved]
  - Nausea [Not Recovered/Not Resolved]
  - Diarrhoea [Recovering/Resolving]
